FAERS Safety Report 7504686-4 (Version None)
Quarter: 2011Q2

REPORT INFORMATION
  Report Type: 
  Country: None (occurrence: None)
  Receive Date: 20110525
  Receipt Date: 20110524
  Transmission Date: 20111010
  Serious: Yes (Other)
  Sender: FDA-Public Use
  Company Number: GR-MERCK-1105GRC00005

PATIENT
  Age: 70 Year
  Weight: 77 kg

DRUGS (7)
  1. TRIMETAZIDINE HYDROCHLORIDE [Concomitant]
     Indication: MACULAR DEGENERATION
     Route: 048
     Dates: start: 20030101
  2. AMLODIPINE BESYLATE [Concomitant]
     Indication: CORONARY ARTERY DISEASE
     Route: 048
     Dates: start: 20060101
  3. AMLODIPINE BESYLATE [Concomitant]
     Indication: HYPERTENSION
     Route: 048
     Dates: start: 20060101
  4. GLICLAZIDE [Concomitant]
     Indication: TYPE 2 DIABETES MELLITUS
     Route: 048
     Dates: start: 20080101
  5. JANUMET [Suspect]
     Indication: TYPE 2 DIABETES MELLITUS
     Route: 048
     Dates: start: 20100401
  6. TICLOPIDINE HYDROCHLORIDE [Concomitant]
     Indication: CORONARY ARTERY DISEASE
     Route: 048
     Dates: start: 20060101
  7. SIMVASTATIN [Concomitant]
     Indication: HYPERCHOLESTEROLAEMIA
     Route: 048
     Dates: start: 20060101

REACTIONS (3)
  - GASTROOESOPHAGEAL REFLUX DISEASE [None]
  - COUGH [None]
  - DYSPEPSIA [None]
